FAERS Safety Report 22325114 (Version 2)
Quarter: 2023Q2

REPORT INFORMATION
  Report Type: Report from Study
  Country: CA (occurrence: CA)
  Receive Date: 20230516
  Receipt Date: 20230608
  Transmission Date: 20230722
  Serious: Yes (Hospitalization)
  Sender: FDA-Public Use
  Company Number: CA-PFIZER INC-202300188883

PATIENT
  Age: 56 Year
  Sex: Female
  Weight: 57 kg

DRUGS (8)
  1. KETOROLAC TROMETHAMINE [Suspect]
     Active Substance: KETOROLAC TROMETHAMINE
     Indication: Hepatic pain
     Dosage: UNK
  2. DILAUDID [Suspect]
     Active Substance: HYDROMORPHONE HYDROCHLORIDE
     Indication: Hepatic pain
     Dosage: UNK
  3. LANREOTIDE ACETATE [Suspect]
     Active Substance: LANREOTIDE ACETATE
     Indication: Carcinoid syndrome
     Dosage: 120 MG, EVERY 4 WEEKS (MONTHLY)
     Route: 058
  4. AMLODIPINE BESYLATE [Concomitant]
     Active Substance: AMLODIPINE BESYLATE
     Dosage: 5 MG, 1X/DAY
  5. ATIVAN [Concomitant]
     Active Substance: LORAZEPAM
     Dosage: UNK, AS NEEDED
  6. CANDESARTAN CILEXETIL AND HYDROCHLOROTHIAZIDE [Concomitant]
     Active Substance: CANDESARTAN CILEXETIL\HYDROCHLOROTHIAZIDE
     Dosage: 16.5 MG, 1X/DAY
  7. CODEINE [Concomitant]
     Active Substance: CODEINE
     Dosage: UNK, AS NEEDED
  8. PANTOPRAZOLE SODIUM [Concomitant]
     Active Substance: PANTOPRAZOLE SODIUM
     Dosage: UNK, AS NEEDED

REACTIONS (14)
  - Abdominal pain [Not Recovered/Not Resolved]
  - Asthenia [Not Recovered/Not Resolved]
  - Blood bilirubin increased [Not Recovered/Not Resolved]
  - Constipation [Not Recovered/Not Resolved]
  - Decreased appetite [Not Recovered/Not Resolved]
  - Fatigue [Not Recovered/Not Resolved]
  - Hepatic neoplasm [Not Recovered/Not Resolved]
  - Hepatic pain [Not Recovered/Not Resolved]
  - Hepatomegaly [Not Recovered/Not Resolved]
  - Hypokalaemia [Not Recovered/Not Resolved]
  - Liver function test abnormal [Not Recovered/Not Resolved]
  - Weight decreased [Not Recovered/Not Resolved]
  - Asthenia [Not Recovered/Not Resolved]
  - Fatigue [Not Recovered/Not Resolved]
